FAERS Safety Report 4660575-4 (Version None)
Quarter: 2005Q2

REPORT INFORMATION
  Report Type: 
  Country: None (occurrence: None)
  Receive Date: 20050512
  Receipt Date: 20050505
  Transmission Date: 20051028
  Serious: Yes (Other)
  Sender: FDA-Public Use
  Company Number: GB-BRISTOL-MYERS SQUIBB COMPANY-12958591

PATIENT
  Age: 46 Year

DRUGS (2)
  1. TAXOL [Suspect]
     Route: 042
     Dates: start: 20050101
  2. PARAPLATIN [Suspect]
     Route: 042
     Dates: start: 20050101

REACTIONS (1)
  - RETINAL HAEMORRHAGE [None]
